FAERS Safety Report 12662399 (Version 2)
Quarter: 2016Q4

REPORT INFORMATION
  Report Type: Spontaneous
  Country: US (occurrence: US)
  Receive Date: 20160817
  Receipt Date: 20161011
  Transmission Date: 20170207
  Serious: No
  Sender: FDA-Public Use
  Company Number: US-SHIRE-US201610508

PATIENT
  Sex: Female
  Weight: 93.88 kg

DRUGS (1)
  1. FIRAZYR [Suspect]
     Active Substance: ICATIBANT ACETATE
     Indication: HEREDITARY ANGIOEDEMA
     Dosage: 30 MG, AS REQ^D
     Route: 058
     Dates: start: 20120507

REACTIONS (3)
  - Vision blurred [Recovered/Resolved]
  - Mydriasis [Recovered/Resolved]
  - Blood cholesterol increased [Unknown]
